FAERS Safety Report 5968533-4 (Version None)
Quarter: 2008Q4

REPORT INFORMATION
  Report Type: 
  Country: None (occurrence: None)
  Receive Date: 20081126
  Receipt Date: 20081119
  Transmission Date: 20090506
  Serious: Yes (Death, Hospitalization, Other)
  Sender: FDA-Public Use
  Company Number: CA-ELI_LILLY_AND_COMPANY-CA200808001019

PATIENT
  Age: 61 Year
  Sex: Male

DRUGS (28)
  1. FORTEO [Suspect]
     Indication: OSTEOPOROSIS
     Dosage: 20 UG, DAILY (1/D)
     Route: 058
     Dates: start: 20080528
  2. PERIDEX [Concomitant]
     Route: 048
  3. RHO-NITRO [Concomitant]
  4. PMS-METFORMIN [Concomitant]
  5. ATIVAN [Concomitant]
  6. PMS-ATENOLOL [Concomitant]
  7. NITRO-DUR [Concomitant]
     Route: 062
  8. PLAVIX [Concomitant]
  9. COMBIVIR [Concomitant]
  10. LYRICA [Concomitant]
  11. ALDARA [Concomitant]
  12. ASAPHEN [Concomitant]
  13. DILAUDID [Concomitant]
  14. NORVIR [Concomitant]
  15. APO-ACYCLOVIR [Concomitant]
  16. NOVOTRIPTYN [Concomitant]
  17. ALTACE [Concomitant]
  18. APO-SALVENT [Concomitant]
  19. ADVAIR DISKUS 100/50 [Concomitant]
  20. NIASPAN [Concomitant]
  21. PANTOLOC                           /01263201/ [Concomitant]
  22. PMS-LOPERAMIDE [Concomitant]
  23. CRESTOR [Concomitant]
  24. APO-FLUCONAZOLE [Concomitant]
  25. APO-CEPHALEX [Concomitant]
  26. COUMADIN [Concomitant]
  27. CORTISONE ACETATE TAB [Concomitant]
  28. ANTIBIOTICS [Concomitant]

REACTIONS (2)
  - LUNG DISORDER [None]
  - PNEUMONIA [None]
